FAERS Safety Report 22618579 (Version 1)
Quarter: 2023Q2

REPORT INFORMATION
  Report Type: Spontaneous
  Country: FR (occurrence: FR)
  Receive Date: 20230620
  Receipt Date: 20230620
  Transmission Date: 20230722
  Serious: No
  Sender: FDA-Public Use
  Company Number: FR-PFM-2022-08867

PATIENT
  Age: 0 Year
  Sex: Male
  Weight: 6 kg

DRUGS (1)
  1. PROPRANOLOL HYDROCHLORIDE [Suspect]
     Active Substance: PROPRANOLOL HYDROCHLORIDE
     Indication: Infantile haemangioma
     Dosage: 7 MG DAILY
     Route: 048
     Dates: start: 20221116, end: 20221123

REACTIONS (4)
  - Crying [Recovered/Resolved]
  - Poor feeding infant [Recovered/Resolved]
  - Agitation [Recovered/Resolved]
  - Sleep disorder [Recovered/Resolved]

NARRATIVE: CASE EVENT DATE: 20221117
